FAERS Safety Report 12650077 (Version 13)
Quarter: 2018Q2

REPORT INFORMATION
  Report Type: Report from Study
  Country: JP (occurrence: JP)
  Receive Date: 20160813
  Receipt Date: 20180628
  Transmission Date: 20180711
  Serious: Yes (Hospitalization, Other)
  Sender: FDA-Public Use
  Company Number: JP-AMGEN-JPNCT2016062965

PATIENT
  Age: 65 Year
  Sex: Female
  Weight: 39.7 kg

DRUGS (52)
  1. CALCIUM LEVOFOLINATE [Suspect]
     Active Substance: LEVOLEUCOVORIN CALCIUM
     Dosage: 250 MG, Q2WEEKS
     Route: 041
     Dates: start: 20160801, end: 20160801
  2. FLUOROURACIL. [Suspect]
     Active Substance: FLUOROURACIL
     Dosage: 500 MG, Q2WK
     Route: 040
     Dates: start: 20160415, end: 20160415
  3. FLUOROURACIL. [Suspect]
     Active Substance: FLUOROURACIL
     Dosage: 3100 MG, Q2WEEKS
     Route: 041
     Dates: start: 20160824, end: 20160824
  4. FLUOROURACIL. [Suspect]
     Active Substance: FLUOROURACIL
     Dosage: 3100 MG, Q2WEEKS
     Route: 041
     Dates: start: 20161109, end: 20161111
  5. MUCOPOLYSACCHARIDE POLYSULFURIC ACID ESTER [Concomitant]
     Dosage: UNK UNK, BID
     Route: 062
     Dates: start: 20160223
  6. RABEPRAZOLE SODIUM. [Concomitant]
     Active Substance: RABEPRAZOLE SODIUM
     Indication: ANTACID THERAPY
     Dosage: 10 MG, QD
     Route: 048
     Dates: start: 20160415, end: 20161201
  7. PANITUMUMAB [Suspect]
     Active Substance: PANITUMUMAB
     Dosage: 230 MG, Q2WK
     Route: 041
     Dates: start: 20160801, end: 20160801
  8. PANITUMUMAB [Suspect]
     Active Substance: PANITUMUMAB
     Dosage: 230 MG, Q2WK
     Route: 041
     Dates: start: 20160824, end: 20160824
  9. OXALIPLATIN. [Suspect]
     Active Substance: OXALIPLATIN
     Dosage: 80 MG, Q2WEEKS
     Route: 041
     Dates: start: 20161014, end: 20161014
  10. CALCIUM LEVOFOLINATE [Suspect]
     Active Substance: LEVOLEUCOVORIN CALCIUM
     Dosage: 250 MG, Q2WEEKS
     Route: 041
     Dates: start: 20160510, end: 20160510
  11. FLUOROURACIL. [Suspect]
     Active Substance: FLUOROURACIL
     Dosage: 200 MG, Q2WK
     Route: 040
     Dates: start: 20161014, end: 20161014
  12. URSODEOXYCHOLIC ACID [Concomitant]
     Active Substance: URSODIOL
     Indication: HEPATIC FUNCTION ABNORMAL
     Dosage: 100 MG, TID
     Route: 048
     Dates: start: 20160527, end: 20161201
  13. OXALIPLATIN. [Suspect]
     Active Substance: OXALIPLATIN
     Dosage: 110 MG, Q2WEEKS
     Route: 041
     Dates: start: 20160510, end: 20160510
  14. CALCIUM LEVOFOLINATE [Suspect]
     Active Substance: LEVOLEUCOVORIN CALCIUM
     Dosage: 250 MG, Q2WEEKS
     Route: 041
     Dates: start: 20160415, end: 20160415
  15. CALCIUM LEVOFOLINATE [Suspect]
     Active Substance: LEVOLEUCOVORIN CALCIUM
     Dosage: 250 MG, Q2WEEKS
     Route: 041
     Dates: start: 20161109, end: 20161109
  16. FLUOROURACIL. [Suspect]
     Active Substance: FLUOROURACIL
     Dosage: 3100 MG, Q2WEEKS
     Route: 041
     Dates: start: 20160415, end: 20160415
  17. FLUOROURACIL. [Suspect]
     Active Substance: FLUOROURACIL
     Dosage: 3100 MG, Q2WEEKS
     Route: 041
     Dates: start: 20160603, end: 20160708
  18. BETAMETHASONE BUTYRATE PROPIONATE [Concomitant]
     Active Substance: BETAMETHASONE BUTYRATE PROPIONATE
     Indication: RASH
     Dosage: UNK UNK, BID
     Route: 062
     Dates: start: 20160322
  19. PANITUMUMAB [Suspect]
     Active Substance: PANITUMUMAB
     Indication: COLON CANCER
     Dosage: 230 MG, Q2WK
     Route: 041
     Dates: start: 20160322, end: 20160322
  20. PANITUMUMAB [Suspect]
     Active Substance: PANITUMUMAB
     Dosage: 230 MG, Q2WK
     Route: 041
     Dates: start: 20160603, end: 20160708
  21. OXALIPLATIN. [Suspect]
     Active Substance: OXALIPLATIN
     Indication: COLON CANCER
     Dosage: 110 MG, Q2WEEKS
     Route: 041
     Dates: start: 20160322, end: 20160322
  22. OXALIPLATIN. [Suspect]
     Active Substance: OXALIPLATIN
     Dosage: 110 MG, Q2WEEKS
     Route: 041
     Dates: start: 20160603, end: 20160708
  23. OXALIPLATIN. [Suspect]
     Active Substance: OXALIPLATIN
     Dosage: 110 MG, Q2WEEKS
     Route: 041
     Dates: start: 20160801, end: 20160801
  24. CALCIUM LEVOFOLINATE [Suspect]
     Active Substance: LEVOLEUCOVORIN CALCIUM
     Dosage: 250 MG, Q2WEEKS
     Route: 041
     Dates: start: 20160824, end: 20160824
  25. FLUOROURACIL. [Suspect]
     Active Substance: FLUOROURACIL
     Dosage: 3100 MG, Q2WEEKS
     Route: 041
     Dates: start: 20160510, end: 20160510
  26. PREDNISOLONE VALEROACETATE [Concomitant]
     Indication: RASH
     Dosage: UNK UNK, BID
     Route: 062
     Dates: start: 20160322
  27. PANITUMUMAB [Suspect]
     Active Substance: PANITUMUMAB
     Dosage: 230 MG, Q2WK
     Route: 041
     Dates: start: 20161109, end: 20161109
  28. OXALIPLATIN. [Suspect]
     Active Substance: OXALIPLATIN
     Dosage: 110 MG, Q2WEEKS
     Route: 041
     Dates: start: 20160415, end: 20160415
  29. OXALIPLATIN. [Suspect]
     Active Substance: OXALIPLATIN
     Dosage: 80 MG, Q2WEEKS
     Route: 041
     Dates: start: 20160920, end: 20160920
  30. CALCIUM LEVOFOLINATE [Suspect]
     Active Substance: LEVOLEUCOVORIN CALCIUM
     Dosage: 250 MG, Q2WEEKS
     Route: 041
     Dates: start: 20160920, end: 20160920
  31. FLUOROURACIL. [Suspect]
     Active Substance: FLUOROURACIL
     Dosage: 500 MG, Q2WK
     Route: 040
     Dates: start: 20160824, end: 20160824
  32. CALCIUM LEVOFOLINATE [Suspect]
     Active Substance: LEVOLEUCOVORIN CALCIUM
     Indication: COLON CANCER
     Dosage: 250 MG, Q2WEEKS
     Route: 041
     Dates: start: 20160322, end: 20160322
  33. CALCIUM LEVOFOLINATE [Suspect]
     Active Substance: LEVOLEUCOVORIN CALCIUM
     Dosage: 250 MG, Q2WEEKS
     Route: 041
     Dates: start: 20161014, end: 20161014
  34. FLUOROURACIL. [Suspect]
     Active Substance: FLUOROURACIL
     Dosage: 500 MG, Q2WK
     Route: 040
     Dates: start: 20160510, end: 20160510
  35. FLUOROURACIL. [Suspect]
     Active Substance: FLUOROURACIL
     Dosage: 500 MG, Q2WK
     Route: 040
     Dates: start: 20160603, end: 20160708
  36. FLUOROURACIL. [Suspect]
     Active Substance: FLUOROURACIL
     Dosage: 3100 MG, Q2WEEKS
     Route: 041
     Dates: start: 20160801, end: 20160801
  37. FLUOROURACIL. [Suspect]
     Active Substance: FLUOROURACIL
     Dosage: 3100 MG, Q2WK
     Route: 041
     Dates: start: 20160920, end: 20160920
  38. PANITUMUMAB [Suspect]
     Active Substance: PANITUMUMAB
     Dosage: 230 MG, Q2WK
     Route: 041
     Dates: start: 20160920, end: 20160920
  39. PANITUMUMAB [Suspect]
     Active Substance: PANITUMUMAB
     Dosage: 230 MG, Q2WK
     Route: 041
     Dates: start: 20161014, end: 20161014
  40. OXALIPLATIN. [Suspect]
     Active Substance: OXALIPLATIN
     Dosage: 80 MG, Q2WEEKS
     Route: 041
     Dates: start: 20161109, end: 20161109
  41. FLUOROURACIL. [Suspect]
     Active Substance: FLUOROURACIL
     Indication: COLON CANCER
     Dosage: 500 MG, Q2WK
     Route: 040
     Dates: start: 20160322, end: 20160322
  42. FLUOROURACIL. [Suspect]
     Active Substance: FLUOROURACIL
     Dosage: 3100 MG, Q2WEEKS
     Route: 041
     Dates: start: 20160322, end: 20160322
  43. FLUOROURACIL. [Suspect]
     Active Substance: FLUOROURACIL
     Dosage: 500 MG, Q2WK
     Route: 040
     Dates: start: 20160801, end: 20160801
  44. FLUOROURACIL. [Suspect]
     Active Substance: FLUOROURACIL
     Dosage: 3100 MG, Q2WEEKS
     Route: 041
     Dates: start: 20161014, end: 20161014
  45. FLUOROURACIL. [Suspect]
     Active Substance: FLUOROURACIL
     Dosage: 200 MG/M2, Q2WK
     Route: 040
     Dates: start: 20161109, end: 20161109
  46. MINOCYCLINE HYDROCHLORIDE. [Concomitant]
     Active Substance: MINOCYCLINE HYDROCHLORIDE
     Indication: PROPHYLAXIS
     Dosage: UNK
     Route: 048
     Dates: start: 20160322, end: 20161122
  47. PANITUMUMAB [Suspect]
     Active Substance: PANITUMUMAB
     Dosage: 230 MG, Q2WK
     Route: 041
     Dates: start: 20160415, end: 20160415
  48. PANITUMUMAB [Suspect]
     Active Substance: PANITUMUMAB
     Dosage: 230 MG, Q2WK
     Route: 041
     Dates: start: 20160510, end: 20160510
  49. OXALIPLATIN. [Suspect]
     Active Substance: OXALIPLATIN
     Dosage: 110 MG, Q2WEEKS
     Route: 041
     Dates: start: 20160824, end: 20160824
  50. CALCIUM LEVOFOLINATE [Suspect]
     Active Substance: LEVOLEUCOVORIN CALCIUM
     Dosage: 250 MG, Q2WEEKS
     Route: 041
     Dates: start: 20160603, end: 20160708
  51. FLUOROURACIL. [Suspect]
     Active Substance: FLUOROURACIL
     Dosage: 200 MG, Q2WK
     Route: 040
     Dates: start: 20160920, end: 20160920
  52. MUCOPOLYSACCHARIDE POLYSULFURIC ACID ESTER [Concomitant]
     Indication: DRY SKIN PROPHYLAXIS
     Dosage: UNK UNK, QID
     Route: 062
     Dates: start: 20160603

REACTIONS (15)
  - Hypoalbuminaemia [Not Recovered/Not Resolved]
  - White blood cell count decreased [Recovered/Resolved]
  - Pigmentation disorder [Not Recovered/Not Resolved]
  - Nausea [Not Recovered/Not Resolved]
  - Neutrophil count decreased [Recovered/Resolved]
  - Alanine aminotransferase increased [Not Recovered/Not Resolved]
  - Dysgeusia [Not Recovered/Not Resolved]
  - Decreased appetite [Not Recovered/Not Resolved]
  - Dermatitis acneiform [Not Recovered/Not Resolved]
  - Stomatitis [Not Recovered/Not Resolved]
  - Blood bilirubin increased [Recovered/Resolved]
  - Dry skin [Not Recovered/Not Resolved]
  - Aspartate aminotransferase increased [Not Recovered/Not Resolved]
  - Cholangitis [Recovering/Resolving]
  - Peripheral sensory neuropathy [Not Recovered/Not Resolved]

NARRATIVE: CASE EVENT DATE: 20161122
